FAERS Safety Report 7439582-4 (Version None)
Quarter: 2011Q2

REPORT INFORMATION
  Report Type: 
  Country: None (occurrence: None)
  Receive Date: 20110427
  Receipt Date: 20101215
  Transmission Date: 20111010
  Serious: Yes (Hospitalization)
  Sender: FDA-Public Use
  Company Number: US-BAYER-201031468NA

PATIENT
  Age: 29 Year
  Sex: Female
  Weight: 75 kg

DRUGS (10)
  1. OCELLA [Suspect]
     Indication: CONTRACEPTION
     Route: 048
     Dates: start: 20080101, end: 20100101
  2. YASMIN [Suspect]
     Indication: CONTRACEPTION
     Route: 048
     Dates: start: 20010101, end: 20060101
  3. YAZ [Suspect]
     Indication: PREMENSTRUAL SYNDROME
  4. IBUPROFEN [Concomitant]
  5. YAZ [Suspect]
     Indication: MENSTRUAL DISORDER
  6. ACETAMINOPHEN [Concomitant]
     Indication: HEADACHE
  7. ACETAMINOPHEN [Concomitant]
  8. ROLAIDS NOS [Concomitant]
     Indication: ABDOMINAL DISCOMFORT
  9. ROLAIDS [Concomitant]
  10. YAZ [Suspect]
     Indication: ABDOMINAL PAIN
     Route: 048
     Dates: start: 20060101, end: 20080101

REACTIONS (7)
  - CHOLELITHIASIS [None]
  - BACK PAIN [None]
  - CHOLECYSTITIS CHRONIC [None]
  - VOMITING [None]
  - ABDOMINAL TENDERNESS [None]
  - BILIARY COLIC [None]
  - ABDOMINAL PAIN UPPER [None]
